FAERS Safety Report 9104224 (Version 1)
Quarter: 2013Q1

REPORT INFORMATION
  Report Type: Spontaneous
  Country: FR (occurrence: FR)
  Receive Date: 20130219
  Receipt Date: 20130219
  Transmission Date: 20140127
  Serious: Yes (Other)
  Sender: FDA-Public Use
  Company Number: FR-PFIZER INC-2013057289

PATIENT
  Age: 33 Year
  Sex: Male

DRUGS (3)
  1. TAHOR [Suspect]
     Indication: HYPERCHOLESTEROLAEMIA
     Dosage: 40 MG, 1X/DAY
     Route: 048
     Dates: start: 201011, end: 201211
  2. KENZEN [Concomitant]
     Dosage: UNK
  3. EUPRESSYL [Concomitant]
     Dosage: UNK

REACTIONS (1)
  - Tubulointerstitial nephritis [Not Recovered/Not Resolved]
